FAERS Safety Report 16075780 (Version 1)
Quarter: 2019Q1

REPORT INFORMATION
  Report Type: Report from Study
  Country: CO (occurrence: CO)
  Receive Date: 20190315
  Receipt Date: 20190315
  Transmission Date: 20190418
  Serious: Yes (Death, Other)
  Sender: FDA-Public Use
  Company Number: CO-ACTELION-A-CH2019-187687

PATIENT
  Sex: Male

DRUGS (1)
  1. MIGLUSTAT CAPSULE 100 MG NPC ROW [Suspect]
     Active Substance: MIGLUSTAT
     Indication: NIEMANN-PICK DISEASE
     Dosage: UNK
     Route: 048
     Dates: start: 20101001, end: 20151201

REACTIONS (5)
  - Pneumonia [Unknown]
  - Respiratory acidosis [Unknown]
  - Renal tubular acidosis [Unknown]
  - Niemann-Pick disease [Fatal]
  - Condition aggravated [Fatal]
